FAERS Safety Report 7438057-6 (Version None)
Quarter: 2011Q2

REPORT INFORMATION
  Report Type: 
  Country: None (occurrence: None)
  Receive Date: 20110426
  Receipt Date: 20110411
  Transmission Date: 20111010
  Serious: Yes (Death, Hospitalization, Other)
  Sender: FDA-Public Use
  Company Number: DE-GENZYME-CAMP-1001408

PATIENT
  Sex: Female
  Weight: 70 kg

DRUGS (50)
  1. CAMPATH [Suspect]
     Indication: PERIPHERAL T-CELL LYMPHOMA UNSPECIFIED
     Dosage: 10 MG, QD
     Route: 058
     Dates: start: 20090623
  2. CYCLOPHOSPHAMIDE [Suspect]
     Dosage: 1200 MG, ONCE
     Route: 042
     Dates: start: 20090721
  3. VINCRISTINE [Suspect]
     Dosage: 2 MG, ONCE
     Route: 042
     Dates: start: 20090806
  4. METOPROLOL SUCCINATE [Concomitant]
     Indication: PRODUCT USED FOR UNKNOWN INDICATION
     Dosage: UNK
     Route: 065
  5. PANTOZOL [Concomitant]
     Indication: PRODUCT USED FOR UNKNOWN INDICATION
     Dosage: 40 MG, QD
     Route: 065
  6. CYCLOPHOSPHAMIDE [Suspect]
     Dosage: 1200 MG, ONCE
     Route: 042
     Dates: start: 20090723
  7. CYCLOPHOSPHAMIDE [Suspect]
     Dosage: 1200 MG, ONCE
     Route: 042
     Dates: start: 20090806
  8. DOXORUBICIN [Suspect]
     Dosage: 80 MG, ONCE
     Route: 042
     Dates: start: 20090908
  9. PREDNISONE [Suspect]
     Dosage: 100 MG, QD FOR 5 DAYS
     Route: 048
     Dates: start: 20090623
  10. PREDNISONE [Suspect]
     Dosage: 100 MG, QD FOR 5 DAYS
     Route: 048
     Dates: start: 20090723
  11. PREDNISONE [Suspect]
     Dosage: 100 MG, QD FOR 5 DAYS
     Route: 048
     Dates: start: 20090911
  12. FILGRASTIM [Suspect]
     Indication: PERIPHERAL T-CELL LYMPHOMA UNSPECIFIED
     Dosage: UNK ON DAYS 4, 5, 6 OF COURSE 1
     Route: 058
     Dates: start: 20090623
  13. FILGRASTIM [Suspect]
     Dosage: UNK ON DAYS 6 + 7 AND DAYS 9 THROUGH 12 OF COURSE 4
     Route: 058
     Dates: start: 20090806
  14. ENOXAPARIN SODIUM [Concomitant]
     Indication: DEEP VEIN THROMBOSIS
     Dosage: 4 ML, QD
     Route: 058
     Dates: start: 20090401, end: 20100415
  15. FONDAPARINUX SODIUM [Concomitant]
     Indication: DEEP VEIN THROMBOSIS
     Dosage: 5 MG, QD
     Route: 058
     Dates: start: 20100505, end: 20100522
  16. ANTIBIOTICS [Concomitant]
     Indication: ANTIVIRAL PROPHYLAXIS
     Dosage: UNK
  17. SPIRIVA [Concomitant]
     Indication: CHRONIC OBSTRUCTIVE PULMONARY DISEASE
  18. DOXORUBICIN [Suspect]
     Dosage: 80 MG, ONCE
     Route: 042
     Dates: start: 20090723
  19. VINCRISTINE [Suspect]
     Dosage: 2 MG, ONCE
     Route: 042
     Dates: start: 20090723
  20. FILGRASTIM [Suspect]
     Dosage: UNK ON DAYS 4 THROUGH 15 OF COURSE 2
     Route: 058
     Dates: start: 20090707
  21. CYCLOPHOSPHAMIDE [Suspect]
     Dosage: 1200 MG, ONCE
     Route: 042
     Dates: start: 20090707
  22. DOXORUBICIN [Suspect]
     Dosage: 80 MG, ONCE
     Route: 042
     Dates: start: 20090721
  23. FILGRASTIM [Suspect]
     Dosage: UNK ON DAYS 4 THROUGH 13 OF COURSE 5
     Route: 058
     Dates: start: 20090820
  24. TRIMETHOPRIM + SULFAMETHOXAZOLE [Concomitant]
     Indication: ANTIFUNGAL PROPHYLAXIS
     Dosage: 960 MG, BID
     Route: 048
     Dates: start: 20090701
  25. TORSEMIDE [Concomitant]
     Indication: PRODUCT USED FOR UNKNOWN INDICATION
     Dosage: 10 MG, QD
     Route: 065
  26. CAMPATH [Suspect]
     Dosage: 20 MG, QD
     Route: 058
     Dates: start: 20090707
  27. CAMPATH [Suspect]
     Dosage: 30 MG, BID
     Route: 058
     Dates: start: 20090723
  28. CAMPATH [Suspect]
     Dosage: 30 MG, QD
     Route: 058
     Dates: start: 20090806
  29. CYCLOPHOSPHAMIDE [Suspect]
     Indication: PERIPHERAL T-CELL LYMPHOMA UNSPECIFIED
     Dosage: 1250 MG, ONCE
     Route: 042
     Dates: start: 20090623
  30. CYCLOPHOSPHAMIDE [Suspect]
     Dosage: 1200 MG, ONCE
     Route: 042
     Dates: start: 20090908
  31. PREDNISONE [Suspect]
     Indication: PERIPHERAL T-CELL LYMPHOMA UNSPECIFIED
     Dosage: 100 MG, QD FOR 5 DAYS
     Route: 048
     Dates: start: 20090615
  32. CAMPATH [Suspect]
     Dosage: 30 MG, QD
     Route: 058
     Dates: start: 20090911, end: 20091022
  33. CYCLOPHOSPHAMIDE [Suspect]
     Dosage: 1200 MG, ONCE
     Route: 042
     Dates: start: 20090820
  34. DOXORUBICIN [Suspect]
     Dosage: 80 MG, ONCE
     Route: 042
     Dates: start: 20090820
  35. VINCRISTINE [Suspect]
     Dosage: 2 MG, ONCE
     Route: 042
     Dates: start: 20090707
  36. FILGRASTIM [Suspect]
     Dosage: 30000 IE, QD
     Route: 058
     Dates: start: 20090911, end: 20090919
  37. GANCICLOVIR [Concomitant]
     Indication: PRODUCT USED FOR UNKNOWN INDICATION
     Dosage: 300 MG, QD FOR 2 DAYS
     Route: 065
     Dates: start: 20090810, end: 20090811
  38. DOXORUBICIN [Suspect]
     Indication: PERIPHERAL T-CELL LYMPHOMA UNSPECIFIED
     Dosage: 80 MG, ONCE
     Route: 042
     Dates: start: 20090623
  39. DOXORUBICIN [Suspect]
     Dosage: 80 MG, ONCE
     Route: 042
     Dates: start: 20090707
  40. DOXORUBICIN [Suspect]
     Dosage: 80 MG, ONCE
     Route: 042
     Dates: start: 20090806
  41. VINCRISTINE [Suspect]
     Dosage: 2 MG, ONCE
     Route: 042
     Dates: start: 20090820
  42. PREDNISONE [Suspect]
     Dosage: 100 MG, QD FOR 5 DAYS
     Route: 048
     Dates: start: 20090806
  43. FILGRASTIM [Suspect]
     Dosage: UNK ON DAYS 4 THROUGH 12 OF COURSE 6
     Route: 058
     Dates: start: 20090908
  44. VINCRISTINE [Suspect]
     Indication: PERIPHERAL T-CELL LYMPHOMA UNSPECIFIED
     Dosage: 1 MG, ONCE
     Route: 042
     Dates: start: 20090615
  45. VINCRISTINE [Suspect]
     Dosage: 2 MG, ONCE
     Route: 042
     Dates: start: 20090623
  46. VINCRISTINE [Suspect]
     Dosage: 2 MG, ONCE
     Route: 042
     Dates: start: 20090721
  47. PREDNISONE [Suspect]
     Dosage: 100 MG, QD FOR 5 DAYS
     Route: 048
     Dates: start: 20090707
  48. FILGRASTIM [Suspect]
     Dosage: UNK ON DAYS 4 THROUGH 8 AND DAY 13 OF COURSE 3
     Route: 058
     Dates: start: 20090723
  49. GANCICLOVIR [Concomitant]
     Dosage: 300 MG, QD
     Route: 065
     Dates: start: 20090812, end: 20090817
  50. FORTECORTIN [Concomitant]
     Indication: PRODUCT USED FOR UNKNOWN INDICATION
     Dosage: 4 MG, BID
     Route: 065

REACTIONS (16)
  - FALL [None]
  - TRAUMATIC HAEMATOMA [None]
  - COGNITIVE DISORDER [None]
  - CYTOKINE RELEASE SYNDROME [None]
  - DEEP VEIN THROMBOSIS [None]
  - PYREXIA [None]
  - ABNORMAL BEHAVIOUR [None]
  - B-CELL LYMPHOMA [None]
  - URINARY INCONTINENCE [None]
  - CYTOMEGALOVIRUS INFECTION [None]
  - EPSTEIN-BARR VIRUS ASSOCIATED LYMPHOPROLIFERATIVE DISORDER [None]
  - PERIPHERAL SENSORY NEUROPATHY [None]
  - NEUTROPHIL TOXIC GRANULATION PRESENT [None]
  - KLEBSIELLA INFECTION [None]
  - ANAEMIA [None]
  - PULMONARY EMBOLISM [None]
